FAERS Safety Report 9239488 (Version 1)
Quarter: 2013Q2

REPORT INFORMATION
  Report Type: Spontaneous
  Country: FR (occurrence: FR)
  Receive Date: 20130418
  Receipt Date: 20130418
  Transmission Date: 20140414
  Serious: Yes (Hospitalization)
  Sender: FDA-Public Use
  Company Number: FR-PFIZER INC-2013115463

PATIENT
  Age: 46 Year
  Sex: Female

DRUGS (1)
  1. MINIDRIL [Suspect]
     Indication: ORAL CONTRACEPTION
     Dosage: 1 DF, 1X/DAY (ETHINYL ESTRADIOL 30UG/LEVONORGESTREL 150UG)
     Route: 048

REACTIONS (1)
  - Arteriospasm coronary [Recovering/Resolving]
